FAERS Safety Report 6420943-7 (Version None)
Quarter: 2009Q4

REPORT INFORMATION
  Report Type: 
  Country: None (occurrence: None)
  Receive Date: 20091030
  Receipt Date: 20091016
  Transmission Date: 20100525
  Serious: Yes (Hospitalization)
  Sender: FDA-Public Use
  Company Number: FR-JNJFOC-20091008291

PATIENT

DRUGS (16)
  1. IXPRIM [Suspect]
     Indication: PAIN
     Route: 048
     Dates: start: 20090801, end: 20090811
  2. ZYVOXID [Suspect]
     Indication: DRUG USE FOR UNKNOWN INDICATION
     Route: 048
  3. ACUPAN [Concomitant]
     Route: 065
  4. NEURONTIN [Concomitant]
     Route: 065
  5. TRIATEC [Concomitant]
     Route: 065
  6. LASILIX [Concomitant]
     Route: 065
  7. LOVENOX [Concomitant]
     Route: 065
  8. PLAVIX [Concomitant]
     Route: 065
  9. ASPEGIC 1000 [Concomitant]
     Route: 065
  10. NEXIUM [Concomitant]
     Route: 065
  11. CARDENSIEL [Concomitant]
     Route: 065
  12. NPH ILETIN I (BEEF-PORK) [Concomitant]
     Route: 065
  13. NPH ILETIN I (BEEF-PORK) [Concomitant]
     Route: 065
  14. TAZOCILLINE [Concomitant]
     Route: 065
  15. CIPROFLOXACIN HYDROCHLORIDE [Concomitant]
     Route: 065
  16. TRIFLUCAN [Concomitant]
     Route: 065

REACTIONS (2)
  - DECREASED INSULIN REQUIREMENT [None]
  - HYPOGLYCAEMIA [None]
